FAERS Safety Report 9422034 (Version 1)
Quarter: 2013Q3

REPORT INFORMATION
  Report Type: Spontaneous
  Country: BR (occurrence: BR)
  Receive Date: 20130726
  Receipt Date: 20130726
  Transmission Date: 20140515
  Serious: Yes (Hospitalization)
  Sender: FDA-Public Use
  Company Number: BR-JNJFOC-20130711926

PATIENT
  Age: 34 Year
  Sex: Male
  Weight: 95 kg

DRUGS (7)
  1. XARELTO [Suspect]
     Indication: CEREBROVASCULAR ACCIDENT PROPHYLAXIS
     Route: 048
     Dates: start: 20130530, end: 20130629
  2. XARELTO [Suspect]
     Indication: ATRIAL FIBRILLATION
     Route: 048
     Dates: start: 20130530, end: 20130629
  3. ANCORON [Concomitant]
     Indication: ATRIAL FIBRILLATION
     Route: 048
     Dates: start: 20130530
  4. CARVEDILOL [Concomitant]
     Indication: CARDIAC DISORDER
     Route: 048
     Dates: start: 2011
  5. RENITEC (ENALAPRIL) [Concomitant]
     Indication: HYPERTENSION
     Route: 048
     Dates: start: 2011
  6. ALDACTONE [Concomitant]
     Indication: POLYURIA
     Route: 048
     Dates: start: 2011
  7. FUROSEMIDE SODIUM [Concomitant]
     Indication: POLYURIA
     Route: 048
     Dates: start: 2011

REACTIONS (1)
  - Thrombosis [Recovering/Resolving]
